FAERS Safety Report 6626623-7 (Version None)
Quarter: 2010Q1

REPORT INFORMATION
  Report Type: 
  Country: None (occurrence: None)
  Receive Date: 20100309
  Receipt Date: 20100309
  Transmission Date: 20100710
  Serious: Yes (Other)
  Sender: FDA-Public Use
  Company Number: None

PATIENT
  Age: 13 Year
  Sex: Female
  Weight: 58.9676 kg

DRUGS (1)
  1. LOESTRIN 24 FE [Suspect]
     Indication: MENSTRUAL DISORDER
     Dosage: 1 DAILY AT BEDTIME
     Dates: start: 20091101, end: 20100128

REACTIONS (3)
  - HYDROCEPHALUS [None]
  - MIGRAINE [None]
  - PARALYSIS [None]
